FAERS Safety Report 7071709-9 (Version None)
Quarter: 2010Q4

REPORT INFORMATION
  Report Type: 
  Country: None (occurrence: None)
  Receive Date: 20101029
  Receipt Date: 20091012
  Transmission Date: 20110411
  Serious: No
  Sender: FDA-Public Use
  Company Number: A0811392A

PATIENT
  Age: 73 Year
  Sex: Male

DRUGS (4)
  1. ADVAIR DISKUS 100/50 [Suspect]
     Indication: CHRONIC OBSTRUCTIVE PULMONARY DISEASE
     Dosage: 1PUFF SINGLE DOSE
     Route: 055
     Dates: start: 20091009, end: 20091009
  2. ASPIRIN [Concomitant]
     Indication: HEADACHE
  3. COMBIVENT [Concomitant]
  4. GINKO BILOBA [Concomitant]

REACTIONS (3)
  - COUGH [None]
  - HAEMOPTYSIS [None]
  - HEADACHE [None]
